FAERS Safety Report 13902212 (Version 1)
Quarter: 2017Q3

REPORT INFORMATION
  Report Type: Spontaneous
  Country: US (occurrence: US)
  Receive Date: 20170824
  Receipt Date: 20170824
  Transmission Date: 20171127
  Serious: No
  Sender: FDA-Public Use
  Company Number: US-ROCHE-1130221

PATIENT
  Sex: Female
  Weight: 72.19 kg

DRUGS (19)
  1. NAPROSYN [Concomitant]
     Active Substance: NAPROXEN
     Dosage: AS REQUIRED
     Route: 065
  2. NEURONTIN [Concomitant]
     Active Substance: GABAPENTIN
     Route: 065
  3. POTASSIUM CHLORIDE. [Concomitant]
     Active Substance: POTASSIUM CHLORIDE
     Route: 048
  4. HERCEPTIN [Suspect]
     Active Substance: TRASTUZUMAB
     Indication: BREAST CANCER
     Dosage: IN 150 CC NS (LOADING DOSE)
     Route: 065
     Dates: start: 20000616
  5. TAXOL [Concomitant]
     Active Substance: PACLITAXEL
     Dosage: IN 250CC NS
     Route: 065
  6. HERCEPTIN [Suspect]
     Active Substance: TRASTUZUMAB
     Dosage: IN 150CC NS
     Route: 065
     Dates: start: 20000630
  7. BENADRYL [Concomitant]
     Active Substance: DIPHENHYDRAMINE HYDROCHLORIDE
     Route: 065
     Dates: start: 20000630
  8. HERCEPTIN [Suspect]
     Active Substance: TRASTUZUMAB
     Dosage: IN 250 CC NS
     Route: 065
     Dates: start: 20000623
  9. CELEBREX [Concomitant]
     Active Substance: CELECOXIB
  10. ZOFRAN [Concomitant]
     Active Substance: ONDANSETRON HYDROCHLORIDE
     Dosage: IN 500CC NS
     Route: 065
  11. CIMETIDINE [Concomitant]
     Active Substance: CIMETIDINE
     Dosage: IN 50CC NS
     Route: 065
  12. DECADRON [Concomitant]
     Active Substance: DEXAMETHASONE
     Dosage: IN 50CC NS
     Route: 065
  13. TAGAMET [Concomitant]
     Active Substance: CIMETIDINE
  14. AREDIA [Concomitant]
     Active Substance: PAMIDRONATE DISODIUM
     Dosage: IN 250CC NS
     Route: 065
  15. LASIX [Concomitant]
     Active Substance: FUROSEMIDE
     Route: 048
  16. MORPHINE [Concomitant]
     Active Substance: MORPHINE
  17. ELAVIL [Concomitant]
     Active Substance: AMITRIPTYLINE HYDROCHLORIDE
  18. PREDNISONE. [Concomitant]
     Active Substance: PREDNISONE
     Route: 065
  19. METHADONE [Concomitant]
     Active Substance: METHADONE HYDROCHLORIDE
     Route: 065
     Dates: start: 20000630

REACTIONS (3)
  - Peripheral swelling [Unknown]
  - Paraesthesia [Unknown]
  - Erythema [Unknown]
